FAERS Safety Report 5034571-1 (Version None)
Quarter: 2006Q2

REPORT INFORMATION
  Report Type: 
  Country: None (occurrence: None)
  Receive Date: 20060621
  Receipt Date: 20060608
  Transmission Date: 20061013
  Serious: No
  Sender: FDA-Public Use
  Company Number: TPA2006A00956

PATIENT
  Sex: Male

DRUGS (9)
  1. ACTOS [Suspect]
     Indication: DIABETES MELLITUS NON-INSULIN-DEPENDENT
     Dosage: 15 MG, 1 IN 1 D; PER ORAL; 30 MG, 1 IN 1 D, PER ORAL, 15 MG, 1 IN 1 D, PER ORAL
     Route: 048
     Dates: start: 20040608, end: 20050101
  2. ACTOS [Suspect]
     Indication: DIABETES MELLITUS NON-INSULIN-DEPENDENT
     Dosage: 15 MG, 1 IN 1 D; PER ORAL; 30 MG, 1 IN 1 D, PER ORAL, 15 MG, 1 IN 1 D, PER ORAL
     Route: 048
     Dates: start: 20050101, end: 20060606
  3. ACTOS [Suspect]
     Indication: DIABETES MELLITUS NON-INSULIN-DEPENDENT
     Dosage: 15 MG, 1 IN 1 D; PER ORAL; 30 MG, 1 IN 1 D, PER ORAL, 15 MG, 1 IN 1 D, PER ORAL
     Route: 048
     Dates: start: 20060606
  4. GLUCOPHAGE (METFORMIN) (500 MILLIGRAM) [Concomitant]
  5. GLIPIZIDE [Concomitant]
  6. COSOPT (TIMOLOL MALEATE, DORZOLAMIDE HYDROCHLORIDE) (EYE DROPS) [Concomitant]
  7. TRAVATAN [Concomitant]
  8. LIPITOR [Concomitant]
  9. GIOVAN (VALSARTAN) (60 MILLIGRAM) [Concomitant]

REACTIONS (2)
  - BLOOD GLUCOSE INCREASED [None]
  - INTRAOCULAR PRESSURE INCREASED [None]
